FAERS Safety Report 7387775-7 (Version None)
Quarter: 2011Q1

REPORT INFORMATION
  Report Type: 
  Country: None (occurrence: None)
  Receive Date: 20110331
  Receipt Date: 20110310
  Transmission Date: 20110831
  Serious: Yes (Hospitalization, Other)
  Sender: FDA-Public Use
  Company Number: US-BAYER-201034775NA

PATIENT
  Sex: Female
  Weight: 54.422 kg

DRUGS (7)
  1. UNCODEABLE ^UNCLASSIFIABLE^ [Concomitant]
     Indication: GASTROOESOPHAGEAL REFLUX DISEASE
     Dosage: UNK
     Dates: start: 19900101
  2. OVCON-35 [Suspect]
  3. YAZ [Suspect]
     Indication: MENORRHAGIA
     Dosage: UNK
     Route: 048
     Dates: start: 20050101, end: 20070301
  4. UNCODEABLE ^UNCLASSIFIABLE^ [Concomitant]
     Dosage: UNK
     Dates: start: 19900101
  5. AMLODIPINE [Concomitant]
     Indication: HYPERTENSION
     Dosage: UNK
     Dates: start: 19850101
  6. YASMIN [Suspect]
     Indication: MENORRHAGIA
     Dosage: UNK
     Route: 048
     Dates: start: 20050101, end: 20070301
  7. LABETALOL [Concomitant]
     Indication: HYPERTENSION
     Dosage: UNK
     Dates: start: 19850101

REACTIONS (5)
  - PULMONARY EMBOLISM [None]
  - INJURY [None]
  - THROMBOSIS [None]
  - PULMONARY THROMBOSIS [None]
  - DEEP VEIN THROMBOSIS [None]
